FAERS Safety Report 22061487 (Version 2)
Quarter: 2023Q1

REPORT INFORMATION
  Report Type: Report from Study
  Country: AE (occurrence: AE)
  Receive Date: 20230304
  Receipt Date: 20230308
  Transmission Date: 20230418
  Serious: Yes (Death, Hospitalization, Other)
  Sender: FDA-Public Use
  Company Number: AE-002147023-NVSC2022AE201049

PATIENT
  Age: 24 Year
  Sex: Male

DRUGS (3)
  1. ENTRESTO [Suspect]
     Active Substance: SACUBITRIL\VALSARTAN
     Indication: Cardiac failure
     Dosage: 0.5 DOSAGE FORM, BID (100 MG)
     Route: 048
     Dates: start: 20211008
  2. ENTRESTO [Suspect]
     Active Substance: SACUBITRIL\VALSARTAN
     Dosage: 100 MG
     Route: 048
     Dates: start: 20211124
  3. ENTRESTO [Suspect]
     Active Substance: SACUBITRIL\VALSARTAN
     Dosage: 50 MG, BID
     Route: 048

REACTIONS (10)
  - Death [Fatal]
  - Pneumonia influenzal [Unknown]
  - Congestive cardiomyopathy [Unknown]
  - Splenic infarction [Unknown]
  - Embolism [Unknown]
  - Ejection fraction decreased [Unknown]
  - Dizziness [Recovering/Resolving]
  - Hypotension [Unknown]
  - Wrong technique in product usage process [Recovered/Resolved]
  - Drug ineffective [Unknown]

NARRATIVE: CASE EVENT DATE: 20220101
